FAERS Safety Report 9410496 (Version 1)
Quarter: 2013Q3

REPORT INFORMATION
  Report Type: Spontaneous
  Country: US (occurrence: None)
  Receive Date: 20130718
  Receipt Date: 20130718
  Transmission Date: 20140515
  Serious: Yes (Other)
  Sender: FDA-Public Use
  Company Number: None

PATIENT
  Age: 28 Year
  Sex: Female

DRUGS (1)
  1. IMPLANON [Suspect]
     Indication: CONTRACEPTION
     Dosage: SQ
     Dates: start: 20111111, end: 20130421

REACTIONS (5)
  - Implant site rash [None]
  - Implant site erythema [None]
  - Implant site pruritus [None]
  - Pain [None]
  - Rash generalised [None]
